FAERS Safety Report 6847724-4 (Version None)
Quarter: 2010Q3

REPORT INFORMATION
  Report Type: 
  Country: None (occurrence: None)
  Receive Date: 20100714
  Receipt Date: 20100629
  Transmission Date: 20110219
  Serious: Yes (Hospitalization)
  Sender: FDA-Public Use
  Company Number: ACO_01264_2010

PATIENT
  Sex: Male

DRUGS (2)
  1. AMPYRA [Suspect]
     Indication: MULTIPLE SCLEROSIS
     Dosage: (10 MG, DF ORAL)
     Route: 048
  2. TWO BLOOD PRESSURE MEDICINES [Suspect]
     Indication: PRODUCT USED FOR UNKNOWN INDICATION
     Dosage: (DF)

REACTIONS (3)
  - ARRHYTHMIA [None]
  - CONDUCTION DISORDER [None]
  - HEART RATE DECREASED [None]
